FAERS Safety Report 9676147 (Version 1)
Quarter: 2013Q4

REPORT INFORMATION
  Report Type: Spontaneous
  Country: IT (occurrence: IT)
  Receive Date: 20131107
  Receipt Date: 20131107
  Transmission Date: 20140711
  Serious: Yes (Other)
  Sender: FDA-Public Use
  Company Number: IT-TEVA-441146ISR

PATIENT
  Age: 40 Year
  Sex: Male

DRUGS (1)
  1. IBUPROFENE [Suspect]
     Route: 048
     Dates: end: 20131017

REACTIONS (3)
  - Mouth haemorrhage [Unknown]
  - Gastritis [Unknown]
  - Pharyngeal haemorrhage [Unknown]
